FAERS Safety Report 7677423-0 (Version None)
Quarter: 2011Q3

REPORT INFORMATION
  Report Type: 
  Country: None (occurrence: None)
  Receive Date: 20110811
  Receipt Date: 20100818
  Transmission Date: 20111222
  Serious: No
  Sender: FDA-Public Use
  Company Number: US-BRISTOL-MYERS SQUIBB COMPANY-15244544

PATIENT
  Age: 46 Year
  Sex: Female

DRUGS (2)
  1. NORVIR [Concomitant]
     Indication: HIV INFECTION
     Dates: start: 20100601
  2. REYATAZ [Suspect]
     Indication: HIV INFECTION
     Dosage: 1DF=200/300MG
     Dates: start: 20100601

REACTIONS (1)
  - MEDICATION ERROR [None]
